FAERS Safety Report 10573079 (Version 3)
Quarter: 2014Q4

REPORT INFORMATION
  Report Type: Spontaneous
  Country: AT (occurrence: AT)
  Receive Date: 20141110
  Receipt Date: 20141119
  Transmission Date: 20150529
  Serious: Yes (Death, Hospitalization, Other)
  Sender: FDA-Public Use
  Company Number: AT-CELGENE-009-20785-11080359

PATIENT

DRUGS (10)
  1. CELECOXIB. [Concomitant]
     Active Substance: CELECOXIB
     Indication: BRAIN NEOPLASM
     Dosage: 50-400 MG
     Route: 048
  2. THALIDOMIDE [Suspect]
     Active Substance: THALIDOMIDE
     Indication: BRAIN NEOPLASM
     Route: 048
  3. CYCLOPHOSPHAMIDE. [Concomitant]
     Active Substance: CYCLOPHOSPHAMIDE
     Indication: BRAIN NEOPLASM
     Dosage: 0.5-2.5 MG/KG
     Route: 065
  4. ETOPOSIDE. [Concomitant]
     Active Substance: ETOPOSIDE
     Indication: BRAIN NEOPLASM
     Dosage: 10-50 MG/M2
     Route: 048
  5. DEXAMETHASONE. [Concomitant]
     Active Substance: DEXAMETHASONE
     Indication: PROPHYLAXIS
     Route: 048
  6. FENOFIBRATE. [Concomitant]
     Active Substance: FENOFIBRATE
     Indication: BRAIN NEOPLASM
     Dosage: OR 90 MG/M2
     Route: 048
  7. CYTARABINE. [Concomitant]
     Active Substance: CYTARABINE
     Indication: BRAIN NEOPLASM
     Dosage: 25 MG TO 50 MG
     Route: 037
  8. TOPOSIDE [Concomitant]
     Indication: BRAIN NEOPLASM
     Route: 037
  9. THALIDOMIDE [Suspect]
     Active Substance: THALIDOMIDE
     Dosage: 1.5-8 MG/KG (AFTER STARTING DOSE OF 3MG/KG)
     Route: 048
  10. BEVACIZUMAB [Concomitant]
     Active Substance: BEVACIZUMAB
     Indication: BRAIN NEOPLASM
     Dosage: 10 MG/KG
     Route: 041

REACTIONS (24)
  - Neutropenia [Unknown]
  - Immunoglobulins decreased [Unknown]
  - Proteinuria [Unknown]
  - Hypothyroidism [Unknown]
  - Headache [Unknown]
  - Lymphopenia [Unknown]
  - Accident [Fatal]
  - Hypertonia [Unknown]
  - Off label use [Unknown]
  - Paraparesis [Unknown]
  - Venous thrombosis [Unknown]
  - Nerve conduction studies abnormal [Unknown]
  - No therapeutic response [Unknown]
  - Metastases to meninges [Unknown]
  - Medulloblastoma [Fatal]
  - Pneumonia [Unknown]
  - Brain cancer metastatic [Unknown]
  - Neuropathy peripheral [Unknown]
  - Decubitus ulcer [Unknown]
  - Intracranial pressure increased [Recovered/Resolved]
  - Death [Fatal]
  - Haematuria [Unknown]
  - Bradycardia [Unknown]
  - Thrombocytopenia [Unknown]
